FAERS Safety Report 7246776-X (Version None)
Quarter: 2011Q1

REPORT INFORMATION
  Report Type: 
  Country: None (occurrence: None)
  Receive Date: 20110127
  Receipt Date: 20110119
  Transmission Date: 20110831
  Serious: Yes (Other)
  Sender: FDA-Public Use
  Company Number: US-ABBOTT-11P-163-0700414-00

PATIENT
  Sex: Female
  Weight: 55.842 kg

DRUGS (2)
  1. LUPRON DEPOT [Suspect]
     Route: 030
     Dates: start: 20101101
  2. LUPRON DEPOT [Suspect]
     Indication: ENDOMETRIOSIS
     Route: 030
     Dates: start: 20080101, end: 20080101

REACTIONS (5)
  - NAUSEA [None]
  - DIZZINESS [None]
  - CHEST DISCOMFORT [None]
  - BLOOD PRESSURE DECREASED [None]
  - FEELING ABNORMAL [None]
